FAERS Safety Report 25256958 (Version 1)
Quarter: 2025Q2

REPORT INFORMATION
  Report Type: Spontaneous
  Country: CH (occurrence: CH)
  Receive Date: 20250430
  Receipt Date: 20250430
  Transmission Date: 20250717
  Serious: Yes (Life-Threatening, Hospitalization, Other)
  Sender: MERCK SHARP & DOHME LLC
  Company Number: None

PATIENT
  Age: 51 Year
  Sex: Female

DRUGS (32)
  1. PEMBROLIZUMAB [Suspect]
     Active Substance: PEMBROLIZUMAB
     Indication: Cervix carcinoma
     Route: 065
     Dates: end: 20230327
  2. CEFTRIAXONE [Suspect]
     Active Substance: CEFTRIAXONE
     Indication: Urinary tract infection
     Route: 065
     Dates: start: 20230505, end: 20230506
  3. PIPERACILLIN AND TAZOBACTAM [Suspect]
     Active Substance: PIPERACILLIN SODIUM\TAZOBACTAM SODIUM
     Route: 065
     Dates: start: 20230430, end: 20230504
  4. FLUCONAZOLE [Suspect]
     Active Substance: FLUCONAZOLE
     Route: 065
     Dates: start: 20230502, end: 20230502
  5. IOMERON [Suspect]
     Active Substance: IOMEPROL
     Dosage: DOSE DESCRIPTION : 4 GRAM, QD
     Dates: start: 20230729, end: 20230729
  6. IOMERON [Suspect]
     Active Substance: IOMEPROL
     Dosage: QD
     Dates: start: 20230429, end: 20230429
  7. IOMERON [Suspect]
     Active Substance: IOMEPROL
     Dates: start: 20250224, end: 20250224
  8. IOMERON [Suspect]
     Active Substance: IOMEPROL
     Dates: start: 20240611, end: 20240611
  9. EUTHYROX [Concomitant]
     Active Substance: LEVOTHYROXINE SODIUM
     Dosage: 50 MICROGRAM, QD
  10. EUTHYROX [Concomitant]
     Active Substance: LEVOTHYROXINE SODIUM
     Dosage: DOSE DESCRIPTION : 100 MICROGRAM, QD
  11. POTASSIUM BICARBONATE\POTASSIUM CITRATE [Concomitant]
     Active Substance: POTASSIUM BICARBONATE\POTASSIUM CITRATE
     Dosage: 30 MMOL, EVERY 12 HOURS
     Route: 048
  12. POTASSIUM BICARBONATE\POTASSIUM CITRATE [Concomitant]
     Active Substance: POTASSIUM BICARBONATE\POTASSIUM CITRATE
     Dosage: DOSE DESCRIPTION : 60 MILLIMOLE, EVERY 12 HOURS
     Route: 048
     Dates: end: 20230731
  13. DUPHALAC [Concomitant]
     Active Substance: LACTULOSE
     Dosage: 20 MILLILITER, EVERY 12 HOURS
     Route: 048
  14. DUPHALAC [Concomitant]
     Active Substance: LACTULOSE
     Dosage: 20 MILLILITER, QD
     Route: 048
  15. HEPARIN [Concomitant]
     Active Substance: HEPARIN SODIUM
     Route: 040
  16. ERTAPENEM [Concomitant]
     Active Substance: ERTAPENEM
     Dosage: 1 MG, QD
     Route: 040
     Dates: start: 20230507
  17. NOVORAPID [Concomitant]
     Active Substance: INSULIN ASPART
     Route: 058
  18. CODEINE [Concomitant]
     Active Substance: CODEINE
  19. LORAZEPAM [Concomitant]
     Active Substance: LORAZEPAM
  20. METAMIZOLE [Concomitant]
     Active Substance: METAMIZOLE
  21. ONDANSETRON [Concomitant]
     Active Substance: ONDANSETRON
  22. POLYETHYLENE GLYCOLS [Concomitant]
     Active Substance: POLYETHYLENE GLYCOLS
  23. ACETAMINOPHEN [Concomitant]
     Active Substance: ACETAMINOPHEN
  24. MAGNESIUM [Concomitant]
     Active Substance: MAGNESIUM
  25. BUTYLSCOPOLAMINE [Concomitant]
     Active Substance: BUTYLSCOPOLAMINE
  26. HYDROCODONE [Concomitant]
     Active Substance: HYDROCODONE
  27. CLEMASTINE [Concomitant]
     Active Substance: CLEMASTINE
     Dates: start: 20230501, end: 20230504
  28. FOLIC ACID [Concomitant]
     Active Substance: FOLIC ACID
     Dosage: DOSE DESCRIPTION : 5 MILLIGRAM, QD
  29. ELIQUIS [Concomitant]
     Active Substance: APIXABAN
     Dosage: DOSE DESCRIPTION : 5 MILLIGRAM, EVERY 12 HOURS
  30. PANTOPRAZOLE [Concomitant]
     Active Substance: PANTOPRAZOLE
     Dosage: DOSE DESCRIPTION : 40 MILLIGRAM, QD
  31. DOMPERIDONE [Concomitant]
     Active Substance: DOMPERIDONE
  32. VALVERDE SCHLAF [Concomitant]

REACTIONS (2)
  - Autoimmune haemolytic anaemia [Recovering/Resolving]
  - Anaemia [Recovering/Resolving]

NARRATIVE: CASE EVENT DATE: 20230101
